FAERS Safety Report 4474629-9 (Version None)
Quarter: 2004Q4

REPORT INFORMATION
  Report Type: 
  Country: None (occurrence: None)
  Receive Date: 20041012
  Receipt Date: 20041001
  Transmission Date: 20050328
  Serious: Yes (Hospitalization, Other)
  Sender: FDA-Public Use
  Company Number: 2004233484BR

PATIENT
  Age: 35 Year
  Sex: Female

DRUGS (2)
  1. DEPO-PROVERA [Suspect]
     Dosage: FIRST INJECT
     Dates: start: 20000101, end: 20000101
  2. DEPO-PROVERA [Suspect]
     Dosage: FIRST INJECT
     Dates: start: 20040312, end: 20040312

REACTIONS (3)
  - AMENORRHOEA [None]
  - HYPERTENSION [None]
  - WEIGHT INCREASED [None]
